FAERS Safety Report 4365683-3 (Version None)
Quarter: 2004Q2

REPORT INFORMATION
  Report Type: 
  Country: None (occurrence: None)
  Receive Date: 20040521
  Receipt Date: 20040504
  Transmission Date: 20050107
  Serious: Yes (Other)
  Sender: FDA-Public Use
  Company Number: FR_040303723

PATIENT
  Sex: Male

DRUGS (5)
  1. PEMETREXED [Suspect]
     Indication: PLEURAL MESOTHELIOMA MALIGNANT
     Dosage: 500 MG/M2/1 OTHER
     Route: 050
     Dates: start: 20031021
  2. CISPLATIN [Concomitant]
  3. FOLIC ACID [Concomitant]
  4. VITAMIN B12C [Concomitant]
  5. DEXAMETHASONE [Concomitant]

REACTIONS (6)
  - ANAEMIA [None]
  - ANOREXIA [None]
  - ASTHENIA [None]
  - CREATININE RENAL CLEARANCE DECREASED [None]
  - KLEBSIELLA INFECTION [None]
  - VOMITING [None]
